FAERS Safety Report 21120890 (Version 1)
Quarter: 2022Q3

REPORT INFORMATION
  Report Type: Spontaneous
  Country: CN (occurrence: None)
  Receive Date: 20220722
  Receipt Date: 20220722
  Transmission Date: 20221027
  Serious: Yes (Other)
  Sender: FDA-Public Use
  Company Number: 2022A257519

PATIENT
  Age: 21316 Day
  Sex: Female
  Weight: 100 kg

DRUGS (2)
  1. ROSUVASTATIN CALCIUM [Suspect]
     Active Substance: ROSUVASTATIN CALCIUM
     Indication: Lipids increased
     Route: 048
     Dates: start: 20220623, end: 20220629
  2. IRBESARTAN AND HYDROCHLOROTIAZIDE [Concomitant]
     Indication: Lipids increased
     Route: 048
     Dates: start: 20220621, end: 20220629

REACTIONS (1)
  - Liver injury [Recovering/Resolving]

NARRATIVE: CASE EVENT DATE: 20220629
